FAERS Safety Report 6159234-0 (Version None)
Quarter: 2009Q2

REPORT INFORMATION
  Report Type: 
  Country: None (occurrence: None)
  Receive Date: 20090417
  Receipt Date: 20090406
  Transmission Date: 20091009
  Serious: Yes (Death, Hospitalization)
  Sender: FDA-Public Use
  Company Number: US-PFIZER INC-2005095942

PATIENT
  Sex: Female
  Weight: 48 kg

DRUGS (11)
  1. SUNITINIB MALATE [Suspect]
     Indication: GASTROINTESTINAL STROMAL TUMOUR
     Route: 048
     Dates: start: 20040716, end: 20050702
  2. SYNTHROID [Suspect]
     Indication: HYPOTHYROIDISM
     Dosage: 50-150 UG, 1X/DAY
     Route: 048
     Dates: start: 20050531
  3. TYLENOL (CAPLET) [Suspect]
     Dosage: UNK
     Route: 048
     Dates: start: 20040903
  4. PREVACID [Concomitant]
     Route: 048
     Dates: start: 20030703
  5. MONTELUKAST [Concomitant]
     Indication: ASTHMA
     Route: 048
     Dates: start: 20030703
  6. ZYRTEC [Concomitant]
     Indication: ASTHMA
     Route: 048
     Dates: start: 20030703
  7. ALBUTEROL [Concomitant]
     Indication: ASTHMA
     Route: 055
     Dates: start: 20030703
  8. MOTRIN [Concomitant]
     Route: 048
     Dates: start: 20030705
  9. ZANTAC [Concomitant]
     Route: 048
     Dates: start: 20040715
  10. EUCERIN [Concomitant]
     Route: 061
     Dates: start: 20041007
  11. MEGACE [Concomitant]
     Route: 048
     Dates: start: 20041216

REACTIONS (7)
  - ASCITES [None]
  - DEHYDRATION [None]
  - DISSEMINATED INTRAVASCULAR COAGULATION [None]
  - HEPATIC FAILURE [None]
  - HEPATIC NECROSIS [None]
  - HEPATOTOXICITY [None]
  - PLEURAL EFFUSION [None]
